FAERS Safety Report 10688853 (Version 2)
Quarter: 2015Q1

REPORT INFORMATION
  Report Type: Spontaneous
  Country: DE (occurrence: DE)
  Receive Date: 20150103
  Receipt Date: 20150209
  Transmission Date: 20150720
  Serious: Yes (Hospitalization)
  Sender: FDA-Public Use
  Company Number: DE-BRISTOL-MYERS SQUIBB COMPANY-BMS-2014-004900

PATIENT
  Age: 53 Year
  Sex: Male
  Weight: 108 kg

DRUGS (2)
  1. ELIQUIS [Suspect]
     Active Substance: APIXABAN
     Indication: CORONARY ARTERY DISEASE
  2. ELIQUIS [Suspect]
     Active Substance: APIXABAN
     Indication: CEREBROVASCULAR ACCIDENT PROPHYLAXIS
     Dosage: 1 DF = 5 UNITS NOS
     Route: 048

REACTIONS (3)
  - Fall [Unknown]
  - Haemorrhage intracranial [Unknown]
  - Back pain [Unknown]

NARRATIVE: CASE EVENT DATE: 20141205
